FAERS Safety Report 4686801-3 (Version None)
Quarter: 2005Q2

REPORT INFORMATION
  Report Type: 
  Country: None (occurrence: None)
  Receive Date: 20050608
  Receipt Date: 20050526
  Transmission Date: 20051028
  Serious: Yes (Hospitalization, Other)
  Sender: FDA-Public Use
  Company Number: 2005024067

PATIENT
  Age: 50 Year
  Sex: Male
  Weight: 66 kg

DRUGS (16)
  1. VFEND [Suspect]
     Indication: BRONCHOPULMONARY ASPERGILLOSIS
     Dosage: 400 MG (1 IN 1 D), INTRAVENOUS
     Route: 042
     Dates: start: 20040906
  2. MYAMBUTOL [Suspect]
     Indication: TUBERCULOSIS
     Dosage: 1200 MG (1 IN 1 D), ORAL
     Route: 048
     Dates: start: 20040906, end: 20041218
  3. OMEPRAZOLE [Suspect]
     Indication: ILL-DEFINED DISORDER
     Dosage: 20 MG (1 IN 1 D), ORAL
     Route: 048
     Dates: start: 20041112
  4. ANSATIPIN (RIFABUTIN) [Concomitant]
  5. CLARITHROMYCIN [Concomitant]
  6. LOXEN (NICARDIPINE HYDROCHLORIDE) [Concomitant]
  7. TRAMADOL HCL [Concomitant]
  8. EPIVIR [Concomitant]
  9. NORVIR [Concomitant]
  10. CRIXIVAN [Concomitant]
  11. NEUPOGEN [Concomitant]
  12. IMOVANE (ZOPICLONE) [Concomitant]
  13. ZIAGEN [Concomitant]
  14. BACTRIM [Concomitant]
  15. LEDERFOLIN (CALCIUM FOLINATE) [Concomitant]
  16. CLONAZEPAM [Concomitant]

REACTIONS (4)
  - MICROANGIOPATHY [None]
  - OPTIC NEURITIS [None]
  - SCOTOMA [None]
  - VISION BLURRED [None]
